FAERS Safety Report 24034948 (Version 2)
Quarter: 2024Q3

REPORT INFORMATION
  Report Type: Spontaneous
  Country: DE (occurrence: DE)
  Receive Date: 20240701
  Receipt Date: 20240718
  Transmission Date: 20241017
  Serious: Yes (Other)
  Sender: ROVIPHARM SAS
  Company Number: DE-ROVI-20230626

PATIENT
  Age: 20 Year
  Sex: Male

DRUGS (4)
  1. RISPERIDONE [Suspect]
     Active Substance: RISPERIDONE
     Indication: Schizophrenia
     Dosage: FORM OF ADMIN. - POWDER AND SOLVENT FOR PROLONGED-RELEASE SUSPENSION FOR INJECTION
     Dates: start: 2023, end: 20240502
  2. RISPERIDONE [Suspect]
     Active Substance: RISPERIDONE
     Dosage: TREATED 4 TIMES AT INTERVALS OF 21 DAYS WITH 100MG OKEDI (02.05.24, 23.05.24,13.06.24, 04.07.24)??FO
     Dates: start: 20240502, end: 20240704
  3. RISPERIDONE [Suspect]
     Active Substance: RISPERIDONE
     Dosage: FORM OF ADMIN. - POWDER AND SOLVENT FOR PROLONGED-RELEASE SUSPENSION FOR INJECTION
     Dates: start: 20240704
  4. Olanzapin 5 mg [Concomitant]
     Indication: Schizophrenia

REACTIONS (6)
  - Listless [Recovered/Resolved]
  - Hallucination, auditory [Recovered/Resolved]
  - Depressed mood [Recovered/Resolved]
  - Drug ineffective [Recovered/Resolved]
  - Off label use [Unknown]
  - Blood prolactin increased [Not Recovered/Not Resolved]

NARRATIVE: CASE EVENT DATE: 20230101
